FAERS Safety Report 11067693 (Version 21)
Quarter: 2018Q4

REPORT INFORMATION
  Report Type: Report from Study
  Country: CA (occurrence: CA)
  Receive Date: 20150427
  Receipt Date: 20181224
  Transmission Date: 20190204
  Serious: Yes (Hospitalization, Other)
  Sender: FDA-Public Use
  Company Number: CA-ROCHE-1563563

PATIENT
  Age: 57 Year
  Sex: Female

DRUGS (15)
  1. MORPHINE [Suspect]
     Active Substance: MORPHINE
     Indication: PAIN
     Route: 065
  2. NORTRIPTYLINE [Concomitant]
     Active Substance: NORTRIPTYLINE
  3. HYDROCHLOROTHIAZIDE. [Concomitant]
     Active Substance: HYDROCHLOROTHIAZIDE
  4. TYLENOL [Concomitant]
     Active Substance: ACETAMINOPHEN
     Dosage: EXTRA STRENGTH
     Route: 065
  5. ERIVEDGE [Suspect]
     Active Substance: VISMODEGIB
     Indication: BASAL CELL CARCINOMA
     Route: 065
     Dates: start: 2011
  6. MIDAMOR [Concomitant]
     Active Substance: AMILORIDE HYDROCHLORIDE
  7. TRAMADOL. [Concomitant]
     Active Substance: TRAMADOL
     Dosage: LONG ACTING
     Route: 065
  8. ERIVEDGE [Suspect]
     Active Substance: VISMODEGIB
     Route: 065
     Dates: start: 201707
  9. ADVIL [Concomitant]
     Active Substance: IBUPROFEN
     Dosage: EXTRA STRENGTH
     Route: 065
  10. GABAPENTIN. [Concomitant]
     Active Substance: GABAPENTIN
  11. AMILORIDE [Concomitant]
     Active Substance: AMILORIDE
  12. CELEBREX [Concomitant]
     Active Substance: CELECOXIB
  13. METOCLOPRAMIDE. [Suspect]
     Active Substance: METOCLOPRAMIDE
     Indication: NAUSEA
     Route: 065
     Dates: start: 201503
  14. TRAZODONE [Concomitant]
     Active Substance: TRAZODONE HYDROCHLORIDE
  15. OMEPRAZOLE. [Concomitant]
     Active Substance: OMEPRAZOLE

REACTIONS (38)
  - Blood magnesium decreased [Unknown]
  - Pancreatitis acute [Unknown]
  - Pancreas infection [Unknown]
  - Confusional state [Unknown]
  - Muscle spasms [Unknown]
  - Bone cyst [Unknown]
  - Blister [Not Recovered/Not Resolved]
  - Visual impairment [Unknown]
  - Telangiectasia [Unknown]
  - Malaise [Not Recovered/Not Resolved]
  - Anxiety [Unknown]
  - Pain [Unknown]
  - Basal cell carcinoma [Unknown]
  - Haemorrhage [Not Recovered/Not Resolved]
  - Stress [Unknown]
  - Discomfort [Not Recovered/Not Resolved]
  - Dehydration [Unknown]
  - Pancreatic duct obstruction [Recovered/Resolved]
  - Rib fracture [Unknown]
  - Drug ineffective [Unknown]
  - Alopecia [Unknown]
  - Fatigue [Unknown]
  - Vomiting [Not Recovered/Not Resolved]
  - Nausea [Not Recovered/Not Resolved]
  - Ill-defined disorder [Not Recovered/Not Resolved]
  - Cholelithiasis [Recovered/Resolved]
  - Malaise [Unknown]
  - Sensory loss [Unknown]
  - Back pain [Unknown]
  - Abdominal distension [Unknown]
  - Swelling [Unknown]
  - Joint dislocation [Unknown]
  - Insomnia [Unknown]
  - Neoplasm [Unknown]
  - Facial pain [Unknown]
  - Skin ulcer [Unknown]
  - Entropion [Unknown]
  - Anxiety [Not Recovered/Not Resolved]

NARRATIVE: CASE EVENT DATE: 2017
